FAERS Safety Report 6073854-3 (Version None)
Quarter: 2009Q1

REPORT INFORMATION
  Report Type: 
  Country: None (occurrence: None)
  Receive Date: 20090209
  Receipt Date: 20090209
  Transmission Date: 20090719
  Serious: Yes (Life-Threatening)
  Sender: FDA-Public Use
  Company Number: None

PATIENT
  Age: 16 Year
  Sex: Female
  Weight: 54.4316 kg

DRUGS (1)
  1. MELLARIL [Suspect]
     Indication: MENTAL DISORDER
     Dosage: 100MG 1 TIME PO
     Route: 048
     Dates: start: 20000105, end: 20000105

REACTIONS (23)
  - AMNESIA [None]
  - CARDIAC DISORDER [None]
  - CHILD ABUSE [None]
  - CHILD NEGLECT [None]
  - CONFUSIONAL STATE [None]
  - CONVULSION [None]
  - CRYING [None]
  - DELUSION [None]
  - DISORIENTATION [None]
  - DRUG PRESCRIBING ERROR [None]
  - FALL [None]
  - FEAR [None]
  - FEELING ABNORMAL [None]
  - FEELING JITTERY [None]
  - FLASHBACK [None]
  - HALLUCINATION [None]
  - HALLUCINATION, VISUAL [None]
  - LOSS OF CONSCIOUSNESS [None]
  - MENTAL IMPAIRMENT [None]
  - MENTAL STATUS CHANGES [None]
  - MOVEMENT DISORDER [None]
  - PALPITATIONS [None]
  - WRONG DRUG ADMINISTERED [None]
